FAERS Safety Report 24618008 (Version 3)
Quarter: 2024Q4

REPORT INFORMATION
  Report Type: Spontaneous
  Country: CA (occurrence: CA)
  Receive Date: 20241114
  Receipt Date: 20241204
  Transmission Date: 20250114
  Serious: Yes (Other)
  Sender: JOHNSON AND JOHNSON
  Company Number: CA-JNJFOC-20241128621

PATIENT
  Sex: Female
  Weight: 53 kg

DRUGS (7)
  1. REMICADE [Suspect]
     Active Substance: INFLIXIMAB
     Indication: Colitis ulcerative
     Route: 041
  2. REMICADE [Suspect]
     Active Substance: INFLIXIMAB
     Dosage: 500 Q6WEEKS,  FINAL DOSE
     Route: 041
     Dates: end: 20220224
  3. STELARA [Suspect]
     Active Substance: USTEKINUMAB
     Indication: Colitis ulcerative
     Route: 058
     Dates: start: 2022
  4. STELARA [Suspect]
     Active Substance: USTEKINUMAB
     Indication: Inflammatory bowel disease
     Route: 058
     Dates: start: 202207
  5. MESALAMINE [Concomitant]
     Active Substance: MESALAMINE
     Route: 065
  6. FLUOXETINE HYDROCHLORIDE [Concomitant]
     Active Substance: FLUOXETINE HYDROCHLORIDE
     Route: 048
  7. LANSOPRAZOLE [Concomitant]
     Active Substance: LANSOPRAZOLE
     Route: 048

REACTIONS (12)
  - Colitis ulcerative [Unknown]
  - Syncope [Unknown]
  - Pancreatitis relapsing [Unknown]
  - Irritable bowel syndrome [Unknown]
  - Therapeutic response decreased [Unknown]
  - Hyperacusis [Unknown]
  - Anxiety [Unknown]
  - Decreased appetite [Unknown]
  - Bulimia nervosa [Unknown]
  - Mental disorder [Unknown]
  - Product use issue [Unknown]
  - Anaemia [Unknown]
